FAERS Safety Report 6380448-9 (Version None)
Quarter: 2009Q3

REPORT INFORMATION
  Report Type: 
  Country: None (occurrence: None)
  Receive Date: 20090929
  Receipt Date: 20090114
  Transmission Date: 20100115
  Serious: No
  Sender: FDA-Public Use
  Company Number: US-BAYER-200910967NA

PATIENT
  Sex: Female
  Weight: 91 kg

DRUGS (1)
  1. MAGNEVIST [Suspect]
     Indication: NUCLEAR MAGNETIC RESONANCE IMAGING
     Dosage: LINE FLUSHED;  RIGHT ANTECUBITAL
     Route: 042
     Dates: start: 20090113, end: 20090113

REACTIONS (4)
  - PRURITUS [None]
  - SNEEZING [None]
  - THROAT TIGHTNESS [None]
  - WHEEZING [None]
